FAERS Safety Report 7809181-0 (Version None)
Quarter: 2011Q4

REPORT INFORMATION
  Report Type: 
  Country: None (occurrence: None)
  Receive Date: 20111012
  Receipt Date: 20100712
  Transmission Date: 20120403
  Serious: Yes (Hospitalization)
  Sender: FDA-Public Use
  Company Number: GB-UCBSA-003#3#2007-00080

PATIENT
  Age: 58 Year
  Sex: Female

DRUGS (3)
  1. ACETAMINOPHEN AND CODEINE PHOSPHATE [Suspect]
     Indication: BACK PAIN
     Route: 048
     Dates: start: 20070127, end: 20070128
  2. LEVOTHYROXINE SODIUM [Concomitant]
     Route: 048
  3. ACETAMINOPHEN [Suspect]
     Route: 048

REACTIONS (3)
  - THIRST [None]
  - DRY MOUTH [None]
  - AGITATION [None]
